FAERS Safety Report 16751930 (Version 1)
Quarter: 2019Q3

REPORT INFORMATION
  Report Type: Spontaneous
  Country: SE (occurrence: SE)
  Receive Date: 20190828
  Receipt Date: 20190828
  Transmission Date: 20191005
  Serious: Yes (Hospitalization, Disabling)
  Sender: FDA-Public Use
  Company Number: SE-TEVA-2019-SE-1097184

PATIENT
  Age: 30 Year
  Sex: Female
  Weight: 57 kg

DRUGS (2)
  1. SOLONA (FLUCONAZOLE) [Suspect]
     Active Substance: FLUCONAZOLE
     Indication: GENITAL INFECTION FUNGAL
     Dosage: ENG?NGSDOS
  2. DIFLUCAN [Suspect]
     Active Substance: FLUCONAZOLE
     Indication: GENITAL INFECTION FUNGAL

REACTIONS (5)
  - Pruritus [Unknown]
  - Blister [Unknown]
  - Paraesthesia [Unknown]
  - Pain [Unknown]
  - Blood blister [Unknown]

NARRATIVE: CASE EVENT DATE: 20190730
